FAERS Safety Report 23827854 (Version 1)
Quarter: 2024Q2

REPORT INFORMATION
  Report Type: Report from Study
  Country: US (occurrence: US)
  Receive Date: 20240507
  Receipt Date: 20240507
  Transmission Date: 20240716
  Serious: Yes (Death, Life-Threatening, Hospitalization, Other)
  Sender: FDA-Public Use
  Company Number: US-JAZZ PHARMACEUTICALS-2024-US-007054

PATIENT
  Age: 56 Year
  Sex: Male

DRUGS (1)
  1. VYXEOS [Suspect]
     Active Substance: CYTARABINE\DAUNORUBICIN
     Indication: Product used for unknown indication
     Dosage: UNK

REACTIONS (11)
  - Death [Fatal]
  - Septic shock [Recovered/Resolved]
  - Pericarditis [Unknown]
  - Myocarditis [Unknown]
  - Endocarditis [Unknown]
  - Cardiomyopathy [Unknown]
  - Electrocardiogram ST segment elevation [Not Recovered/Not Resolved]
  - Arrhythmia [Recovered/Resolved]
  - Febrile neutropenia [Recovered/Resolved]
  - Ascites [Recovered/Resolved]
  - Pulmonary oedema [Not Recovered/Not Resolved]

NARRATIVE: CASE EVENT DATE: 20190505
